FAERS Safety Report 8912478 (Version 2)
Quarter: 2012Q4

REPORT INFORMATION
  Report Type: Report from Study
  Country: BR (occurrence: BR)
  Receive Date: 20121116
  Receipt Date: 20121205
  Transmission Date: 20130627
  Serious: Yes (Death)
  Sender: FDA-Public Use
  Company Number: BR-ROCHE-1155167

PATIENT
  Age: 27 Year
  Sex: Female

DRUGS (3)
  1. BEVACIZUMAB [Suspect]
     Indication: METASTASES TO LIVER
     Route: 065
     Dates: start: 201102
  2. TAXOL [Concomitant]
     Indication: METASTASES TO LIVER
  3. ZOMETA [Concomitant]
     Indication: METASTASES TO LIVER

REACTIONS (6)
  - Death [Fatal]
  - Wound [Unknown]
  - Wound [Unknown]
  - Sedation [Unknown]
  - Somnolence [Unknown]
  - Fatigue [Recovered/Resolved]
